FAERS Safety Report 5483406-1 (Version None)
Quarter: 2007Q4

REPORT INFORMATION
  Report Type: 
  Country: None (occurrence: None)
  Receive Date: 20071009
  Receipt Date: 20070927
  Transmission Date: 20080405
  Serious: Yes (Hospitalization)
  Sender: FDA-Public Use
  Company Number: 2007BI018503

PATIENT
  Age: 43 Year
  Sex: Female

DRUGS (1)
  1. AVONEX [Suspect]
     Indication: MULTIPLE SCLEROSIS
     Dosage: 30 UG;QW;IM
     Route: 030
     Dates: start: 19990901

REACTIONS (5)
  - BACK PAIN [None]
  - MULTIPLE SCLEROSIS RELAPSE [None]
  - OSTEONECROSIS [None]
  - OVERDOSE [None]
  - POST PROCEDURAL COMPLICATION [None]
